FAERS Safety Report 4539743-8 (Version None)
Quarter: 2004Q4

REPORT INFORMATION
  Report Type: 
  Country: None (occurrence: None)
  Receive Date: 20041222
  Receipt Date: 20041209
  Transmission Date: 20050328
  Serious: Yes (Hospitalization)
  Sender: FDA-Public Use
  Company Number: 2004107622

PATIENT
  Sex: Male

DRUGS (2)
  1. CELEBREX [Suspect]
     Indication: ILL-DEFINED DISORDER
  2. NITROSTAT [Suspect]
     Indication: ILL-DEFINED DISORDER

REACTIONS (3)
  - ANGINA PECTORIS [None]
  - CARDIAC DISORDER [None]
  - INJURY [None]
